FAERS Safety Report 5098934-0 (Version None)
Quarter: 2006Q3

REPORT INFORMATION
  Report Type: 
  Country: None (occurrence: None)
  Receive Date: 20060907
  Receipt Date: 20060830
  Transmission Date: 20061208
  Serious: Yes (Hospitalization)
  Sender: FDA-Public Use
  Company Number: FR-AVENTIS-200613002FR

PATIENT
  Age: 71 Year
  Sex: Male

DRUGS (15)
  1. SOLUPRED [Suspect]
     Route: 048
  2. IMOVANE [Suspect]
     Route: 048
     Dates: end: 20060714
  3. LANTUS [Suspect]
     Route: 058
     Dates: end: 20060801
  4. XATRAL [Suspect]
     Route: 048
     Dates: end: 20060801
  5. PLAVIX [Suspect]
     Route: 048
     Dates: end: 20060714
  6. DETENSIEL [Suspect]
     Route: 048
  7. AMLOR [Suspect]
     Route: 048
  8. CELLCEPT [Suspect]
     Dates: end: 20060706
  9. PROGRAF [Suspect]
     Dates: end: 20060728
  10. ARANESP [Suspect]
  11. TARDYFERON [Suspect]
     Route: 048
     Dates: end: 20060714
  12. MOPRAL [Suspect]
     Dates: end: 20060727
  13. TAHOR [Suspect]
     Route: 048
     Dates: end: 20060728
  14. ROVALCYTE [Concomitant]
     Route: 048
     Dates: start: 20060101, end: 20060101
  15. RAPAMUNE [Concomitant]
     Route: 048
     Dates: start: 20060728

REACTIONS (3)
  - AGRANULOCYTOSIS [None]
  - BONE MARROW DISORDER [None]
  - DIARRHOEA [None]
